FAERS Safety Report 11131452 (Version 1)
Quarter: 2015Q2

REPORT INFORMATION
  Report Type: Spontaneous
  Country: US (occurrence: None)
  Receive Date: 20150521
  Receipt Date: 20150521
  Transmission Date: 20150821
  Serious: Yes (Other)
  Sender: FDA-Public Use
  Company Number: None

PATIENT
  Age: 47 Year
  Sex: Female

DRUGS (1)
  1. HARVONI [Suspect]
     Active Substance: LEDIPASVIR\SOFOSBUVIR
     Indication: HEPATITIS C
     Route: 048
     Dates: start: 20150115

REACTIONS (8)
  - Nausea [None]
  - Disorientation [None]
  - Time perception altered [None]
  - Anaemia [None]
  - Headache [None]
  - Insomnia [None]
  - Visual impairment [None]
  - Hypertension [None]

NARRATIVE: CASE EVENT DATE: 20150511
